FAERS Safety Report 5708127-9 (Version None)
Quarter: 2008Q2

REPORT INFORMATION
  Report Type: 
  Country: None (occurrence: None)
  Receive Date: 20080417
  Receipt Date: 20080410
  Transmission Date: 20081010
  Serious: Yes (Other)
  Sender: FDA-Public Use
  Company Number: A0722137A

PATIENT
  Age: 23 Year
  Sex: Female

DRUGS (2)
  1. ADVAIR HFA [Suspect]
     Indication: ASTHMA
     Route: 055
     Dates: end: 20080407
  2. ALBUTEROL [Concomitant]

REACTIONS (9)
  - ABNORMAL SENSATION IN EYE [None]
  - ANGINA PECTORIS [None]
  - ANXIETY [None]
  - DEPRESSION [None]
  - EAR DISCOMFORT [None]
  - FATIGUE [None]
  - HYPOAESTHESIA [None]
  - INSOMNIA [None]
  - WEIGHT INCREASED [None]
